FAERS Safety Report 21378736 (Version 1)
Quarter: 2022Q3

REPORT INFORMATION
  Report Type: Spontaneous
  Country: CN (occurrence: CN)
  Receive Date: 20220927
  Receipt Date: 20220927
  Transmission Date: 20221026
  Serious: Yes (Life-Threatening, Hospitalization, Other)
  Sender: FDA-Public Use
  Company Number: CN-SUN PHARMACEUTICAL INDUSTRIES LTD-2022R1-355687

PATIENT
  Age: 16 Year
  Sex: Female

DRUGS (3)
  1. MYCOPHENOLATE MOFETIL [Suspect]
     Active Substance: MYCOPHENOLATE MOFETIL
     Indication: Systemic lupus erythematosus
     Dosage: 0.5 GRAM, BID
     Route: 065
  2. PREDNISONE [Suspect]
     Active Substance: PREDNISONE
     Indication: Systemic lupus erythematosus
     Dosage: 50 MILLIGRAM, QD
     Route: 065
  3. BELIMUMAB [Suspect]
     Active Substance: BELIMUMAB
     Indication: Systemic lupus erythematosus
     Dosage: 360 MILLIGRAM, MONTHLY
     Route: 042

REACTIONS (7)
  - Disseminated varicella zoster virus infection [Recovering/Resolving]
  - Liver injury [Recovering/Resolving]
  - Thrombocytopenia [Recovering/Resolving]
  - Pneumonia [Recovering/Resolving]
  - Septic shock [Recovering/Resolving]
  - Multiple organ dysfunction syndrome [Recovering/Resolving]
  - Infectious pleural effusion [Recovering/Resolving]
